FAERS Safety Report 19147837 (Version 1)
Quarter: 2021Q2

REPORT INFORMATION
  Report Type: Spontaneous
  Country: US (occurrence: US)
  Receive Date: 20210417
  Receipt Date: 20210417
  Transmission Date: 20210717
  Serious: No
  Sender: FDA-Public Use
  Company Number: US-DRREDDYS-USA/USA/21/0133863

PATIENT
  Age: 14 Year
  Sex: Male

DRUGS (2)
  1. ZENATANE [Suspect]
     Active Substance: ISOTRETINOIN
     Indication: PRODUCT USED FOR UNKNOWN INDICATION
     Dosage: RMA ISSUE DATE: 12/18/2020 3:40:14 PM, 1/19/2021 7:03:36 PM , 3/4/2021 7:29:28 PM
     Route: 048
  2. ZENATANE [Suspect]
     Active Substance: ISOTRETINOIN
     Dosage: RMA ISSUE DATE: 12/18/2020 3:41:00 PM, 1/19/2021 6:49:33 PM, 3/4/2021 7:29:37 PM
     Route: 048

REACTIONS (1)
  - Rash [Unknown]
